FAERS Safety Report 8962271 (Version 1)
Quarter: 2012Q4

REPORT INFORMATION
  Report Type: 
  Country: NL (occurrence: NL)
  Receive Date: 20121212
  Receipt Date: 20121212
  Transmission Date: 20130627
  Serious: Yes (Hospitalization)
  Sender: FDA-Public Use
  Company Number: NL-PFIZER INC-2012308630

PATIENT
  Age: 46 Year
  Sex: Female
  Weight: 62 kg

DRUGS (12)
  1. GENOTROPIN [Suspect]
     Dosage: 0.5 mg, 1x/day, 7 injections/week
     Route: 058
     Dates: start: 20030404
  2. PROGYNOVA [Concomitant]
     Indication: LUTEINISING HORMONE DEFICIENCY
     Dosage: UNK
     Dates: start: 19991115
  3. PROGYNOVA [Concomitant]
     Indication: FOLLICLE-STIMULATING HORMONE DEFICIENCY
  4. PROGYNOVA [Concomitant]
     Indication: OVARIAN DISORDER
  5. PROGYNOVA [Concomitant]
     Indication: HYPOGONADISM
  6. FLUDROCORTISONE [Concomitant]
     Indication: ADRENALECTOMY
     Dosage: UNK
     Dates: start: 20000215
  7. FLORINEF [Concomitant]
     Dosage: UNK
     Dates: start: 20000515
  8. HYDROCORTISONE [Concomitant]
     Indication: ACTH DECREASED
     Dosage: UNK
     Dates: start: 19990815
  9. LEVOTHYROXINE [Concomitant]
     Indication: TSH DECREASED
     Dosage: UNK
     Dates: start: 19971015
  10. LEVOTHYROXINE [Concomitant]
     Indication: PRIMARY HYPOTHYROIDISM
  11. CALCIUM SANDOZ C [Concomitant]
     Indication: BONE DISORDER
     Dosage: UNK
     Dates: start: 20031027
  12. CALCIUM SANDOZ C [Concomitant]
     Indication: CARTILAGE DISORDER

REACTIONS (1)
  - Gastrointestinal disorder [Unknown]
